FAERS Safety Report 6249537-3 (Version None)
Quarter: 2009Q2

REPORT INFORMATION
  Report Type: 
  Country: None (occurrence: None)
  Receive Date: 20090625
  Receipt Date: 20090612
  Transmission Date: 20091009
  Serious: Yes (Hospitalization)
  Sender: FDA-Public Use
  Company Number: 2009-1177

PATIENT
  Sex: Female

DRUGS (1)
  1. LANREOTIDE OR PLACEBO (LANREOTIDE) (BLINDED STUDY DRUG) [Suspect]
     Indication: LYMPHORRHOEA
     Dosage: 90 MG, ONCE SUBCUTANEOUS ONE CYCLE
     Route: 058
     Dates: start: 20080727, end: 20080727

REACTIONS (4)
  - CAESAREAN SECTION [None]
  - FOETAL DISTRESS SYNDROME [None]
  - FOETAL HEART RATE DECREASED [None]
  - MATERNAL DRUGS AFFECTING FOETUS [None]
